FAERS Safety Report 13482761 (Version 2)
Quarter: 2017Q3

REPORT INFORMATION
  Report Type: Spontaneous
  Country: US (occurrence: US)
  Receive Date: 20170424
  Receipt Date: 20170728
  Transmission Date: 20171127
  Serious: No
  Sender: FDA-Public Use
  Company Number: US-AMGEN-USASP2017055702

PATIENT

DRUGS (3)
  1. REPATHA [Suspect]
     Active Substance: EVOLOCUMAB
  2. PRALUENT [Concomitant]
     Active Substance: ALIROCUMAB
     Dosage: UNK
  3. REPATHA [Suspect]
     Active Substance: EVOLOCUMAB
     Indication: PRODUCT USED FOR UNKNOWN INDICATION
     Dosage: UNK
     Route: 065

REACTIONS (2)
  - Neck pain [Unknown]
  - Muscle spasms [Unknown]
